FAERS Safety Report 4512327-3 (Version None)
Quarter: 2004Q4

REPORT INFORMATION
  Report Type: 
  Country: None (occurrence: None)
  Receive Date: 20041129
  Receipt Date: 20041112
  Transmission Date: 20050328
  Serious: Yes (Other)
  Sender: FDA-Public Use
  Company Number: NL-GLAXOSMITHKLINE-B0357637A

PATIENT
  Sex: Female

DRUGS (1)
  1. FLUTICASONE PROPIONATE [Suspect]
     Indication: LUNG INFECTION
     Route: 065
     Dates: start: 20040601, end: 20041101

REACTIONS (4)
  - ERYTHEMA [None]
  - EYE IRRITATION [None]
  - EYE REDNESS [None]
  - SKIN ATROPHY [None]
